FAERS Safety Report 18043202 (Version 2)
Quarter: 2020Q3

REPORT INFORMATION
  Report Type: Spontaneous
  Country: US (occurrence: US)
  Receive Date: 20200720
  Receipt Date: 20200727
  Transmission Date: 20201103
  Serious: No
  Sender: FDA-Public Use
  Company Number: US-PFIZER INC-2020271849

PATIENT
  Age: 48 Year
  Sex: Female
  Weight: 56.7 kg

DRUGS (6)
  1. PAXIL [Interacting]
     Active Substance: PAROXETINE HYDROCHLORIDE
     Indication: DEPRESSION
     Dosage: 20 MG, 1X/DAY (TABLET?1/2 TABLET (20MG TOTAL) TAKEN NIGHTLY)
     Dates: start: 1994
  2. RANITIDINE. [Concomitant]
     Active Substance: RANITIDINE
     Indication: GASTROOESOPHAGEAL REFLUX DISEASE
     Dosage: UNK
  3. FAMOTIDINE. [Concomitant]
     Active Substance: FAMOTIDINE
     Indication: GASTROOESOPHAGEAL REFLUX DISEASE
     Dosage: 40 MG, 2X/DAY
     Dates: start: 2020
  4. PREMPRO [Suspect]
     Active Substance: ESTROGENS, CONJUGATED\MEDROXYPROGESTERONE ACETATE
     Indication: DEPRESSION
     Dosage: 0.625 MG, 1X/DAY(0.625MG TABLET TAKEN ONCE DAILY BY MOUTH)
     Route: 048
     Dates: start: 1994, end: 20200615
  5. WIXELA INHUB [Concomitant]
     Active Substance: FLUTICASONE PROPIONATE\SALMETEROL XINAFOATE
     Indication: ASTHMA
     Dosage: UNK, 1X/DAY (1 BREATH OF INHALER EVERY MORNING)
     Dates: start: 2015
  6. ENCRISE [Concomitant]
     Indication: ASTHMA
     Dosage: UNK, 1X/DAY (INHALER USED NIGHTLY)
     Dates: start: 2015

REACTIONS (5)
  - Product use in unapproved indication [Unknown]
  - Drug effective for unapproved indication [Unknown]
  - Blood cholesterol increased [Recovered/Resolved]
  - Off label use [Unknown]
  - Drug interaction [Unknown]

NARRATIVE: CASE EVENT DATE: 1994
